FAERS Safety Report 7918913-2 (Version None)
Quarter: 2011Q4

REPORT INFORMATION
  Report Type: 
  Country: None (occurrence: None)
  Receive Date: 20111116
  Receipt Date: 20110926
  Transmission Date: 20120403
  Serious: Yes (Life-Threatening, Hospitalization, Disabling, Other)
  Sender: FDA-Public Use
  Company Number: PHHO2011PH15863

PATIENT
  Sex: Male
  Weight: 60.2 kg

DRUGS (5)
  1. QAB149 [Suspect]
     Indication: CHRONIC OBSTRUCTIVE PULMONARY DISEASE
     Dosage: 150 UG, QD
     Dates: start: 20110601, end: 20111008
  2. BUDESONIDE [Concomitant]
     Indication: CHRONIC OBSTRUCTIVE PULMONARY DISEASE
     Dosage: 400 UG, BID
     Dates: start: 20110519, end: 20111006
  3. VENTOLIN [Concomitant]
     Indication: CHRONIC OBSTRUCTIVE PULMONARY DISEASE
     Dosage: 100 UG, PRN
     Dates: start: 20110519, end: 20111006
  4. ALBUTEROL SULFATE AUTOHALER [Concomitant]
     Indication: CHRONIC OBSTRUCTIVE PULMONARY DISEASE
     Dosage: 100 UG, PRN
     Dates: start: 20110519
  5. AMLODIPINE [Concomitant]
     Indication: HYPERTENSION
     Dosage: 5 MG, PRN
     Dates: start: 20110601, end: 20111006

REACTIONS (12)
  - LOWER RESPIRATORY TRACT INFECTION BACTERIAL [None]
  - HYPERTENSIVE HEART DISEASE [None]
  - NEUTROPHIL COUNT INCREASED [None]
  - DRUG INEFFECTIVE [None]
  - ELECTROCARDIOGRAM ST SEGMENT DEPRESSION [None]
  - ARRHYTHMIA [None]
  - BLOOD SODIUM DECREASED [None]
  - CHRONIC OBSTRUCTIVE PULMONARY DISEASE [None]
  - BUNDLE BRANCH BLOCK LEFT [None]
  - VENTRICULAR EXTRASYSTOLES [None]
  - INSOMNIA [None]
  - LYMPHOCYTE COUNT DECREASED [None]
